FAERS Safety Report 8919192 (Version 1)
Quarter: 2012Q4

REPORT INFORMATION
  Report Type: 
  Country: US (occurrence: US)
  Receive Date: 20121121
  Receipt Date: 20121121
  Transmission Date: 20130627
  Serious: No
  Sender: FDA-Public Use
  Company Number: US-B.I. PHARMACEUTICALS,INC./RIDGEFIELD-2012-BI-00703BP

PATIENT
  Age: 77 Year
  Sex: Male
  Weight: 91 kg

DRUGS (7)
  1. PRADAXA [Suspect]
     Indication: ANTICOAGULANT THERAPY
     Dosage: 300 mg
     Route: 048
     Dates: start: 20121025
  2. NEXIUM [Concomitant]
     Indication: GASTROOESOPHAGEAL REFLUX DISEASE
     Dosage: 40 mg
     Route: 048
     Dates: start: 201209
  3. GLIPIZIDE [Concomitant]
     Indication: DIABETES MELLITUS
     Dosage: 5 mg
     Route: 048
     Dates: start: 2010
  4. METOPROLOL [Concomitant]
     Dosage: 12.5 mg
     Route: 048
     Dates: start: 20121022
  5. LISINOPRIL [Concomitant]
     Indication: HYPERTENSION
     Dosage: 10 mg
     Route: 048
     Dates: start: 2011
  6. TIMOLOL [Concomitant]
     Indication: GLAUCOMA
     Dates: start: 2009
  7. LUMIGAN [Concomitant]
     Indication: GLAUCOMA
     Dates: start: 2009

REACTIONS (1)
  - Heart rate increased [Recovered/Resolved]
